FAERS Safety Report 5120054-7 (Version None)
Quarter: 2006Q3

REPORT INFORMATION
  Report Type: 
  Country: None (occurrence: None)
  Receive Date: 20060929
  Receipt Date: 20060905
  Transmission Date: 20061208
  Serious: Yes (Hospitalization)
  Sender: FDA-Public Use
  Company Number: 2006SP000903

PATIENT
  Age: 58 Year
  Sex: Female
  Weight: 59 kg

DRUGS (1)
  1. DIPROSPAN [Suspect]
     Dosage: IM
     Route: 030

REACTIONS (3)
  - AGITATION [None]
  - PAIN IN EXTREMITY [None]
  - TREMOR [None]
